FAERS Safety Report 4567979-9 (Version None)
Quarter: 2005Q1

REPORT INFORMATION
  Report Type: 
  Country: None (occurrence: None)
  Receive Date: 20050131
  Receipt Date: 20050114
  Transmission Date: 20050727
  Serious: Yes (Disabling)
  Sender: FDA-Public Use
  Company Number: 2004-FF-00612FF

PATIENT
  Age: 60 Year
  Sex: Male

DRUGS (5)
  1. VIRAMUNE [Suspect]
     Indication: HIV INFECTION
     Dosage: MG PO
     Route: 048
     Dates: start: 19990101
  2. MODOPAR (MADOPAR) (UNK) [Concomitant]
  3. ELISOR (PRAVASTATIN SODIUM) (TA) [Concomitant]
  4. COMBIVIR [Concomitant]
  5. CO RENITEC (UNK) [Concomitant]

REACTIONS (2)
  - OSTEOARTHRITIS [None]
  - OSTEONECROSIS [None]
